FAERS Safety Report 25585681 (Version 1)
Quarter: 2025Q3

REPORT INFORMATION
  Report Type: Spontaneous
  Country: AR (occurrence: AR)
  Receive Date: 20250721
  Receipt Date: 20250721
  Transmission Date: 20251020
  Serious: Yes (Hospitalization, Other)
  Sender: PFIZER
  Company Number: AR-PFIZER INC-202500146315

PATIENT
  Age: 66 Year
  Sex: Male

DRUGS (1)
  1. LORLATINIB [Suspect]
     Active Substance: LORLATINIB
     Indication: Lung cancer metastatic
     Dosage: 100 MG, 1X/DAY
     Dates: start: 20220706

REACTIONS (1)
  - Cerebrovascular accident [Unknown]
